FAERS Safety Report 6630361-4 (Version None)
Quarter: 2010Q1

REPORT INFORMATION
  Report Type: 
  Country: None (occurrence: None)
  Receive Date: 20100311
  Receipt Date: 20090616
  Transmission Date: 20100710
  Serious: Yes (Hospitalization)
  Sender: FDA-Public Use
  Company Number: US-BIOGENIDEC-2009BI018516

PATIENT
  Age: 50 Year
  Sex: Female
  Weight: 94 kg

DRUGS (5)
  1. AVONEX [Suspect]
     Indication: MULTIPLE SCLEROSIS
     Route: 030
     Dates: start: 20010101, end: 20030101
  2. AVONEX [Suspect]
     Route: 030
     Dates: start: 20030101
  3. TOPROL-XL [Concomitant]
     Indication: HYPERTENSION
     Route: 048
  4. TOPROL-XL [Concomitant]
     Route: 048
  5. LOTREL [Concomitant]
     Indication: HYPERTENSION
     Route: 048

REACTIONS (5)
  - DIABETES MELLITUS [None]
  - GLYCOSYLATED HAEMOGLOBIN INCREASED [None]
  - HYPOAESTHESIA [None]
  - PARAESTHESIA [None]
  - STRESS [None]
